FAERS Safety Report 22320464 (Version 1)
Quarter: 2023Q2

REPORT INFORMATION
  Report Type: Spontaneous
  Country: US (occurrence: None)
  Receive Date: 20230512
  Receipt Date: 20230512
  Transmission Date: 20230722
  Serious: Yes (Hospitalization)
  Sender: FDA-Public Use
  Company Number: None

PATIENT
  Age: 64 Year
  Sex: Female

DRUGS (4)
  1. KESIMPTA [Suspect]
     Active Substance: OFATUMUMAB
     Indication: Multiple sclerosis
     Dosage: 20MG OTHER  SUBCUTANEOUS?
     Route: 058
     Dates: start: 202205
  2. BIOTIN [Concomitant]
     Active Substance: BIOTIN
  3. LUPITOR [Concomitant]
  4. ALBUTEROL [Concomitant]
     Active Substance: ALBUTEROL

REACTIONS (1)
  - Steroid therapy [None]

NARRATIVE: CASE EVENT DATE: 20230421
